FAERS Safety Report 7269815-9 (Version None)
Quarter: 2011Q1

REPORT INFORMATION
  Report Type: 
  Country: None (occurrence: None)
  Receive Date: 20110126
  Receipt Date: 20110110
  Transmission Date: 20110831
  Serious: Yes (Hospitalization)
  Sender: FDA-Public Use
  Company Number: 2011NL0011

PATIENT
  Age: 14 Year
  Sex: Male

DRUGS (1)
  1. KINERET [Suspect]
     Indication: MUCKLE-WELLS SYNDROME
     Dosage: 100 MG (100 MG, 1 IN 1 D) SUBCUTANEOUS
     Route: 058
     Dates: start: 20100701

REACTIONS (1)
  - HERPES SIMPLEX [None]
